FAERS Safety Report 9148005 (Version 3)
Quarter: 2013Q2

REPORT INFORMATION
  Report Type: Spontaneous
  Country: JP (occurrence: JP)
  Receive Date: 20130308
  Receipt Date: 20130417
  Transmission Date: 20140414
  Serious: Yes (Death)
  Sender: FDA-Public Use
  Company Number: JP-AMGEN-JPNSP2013015613

PATIENT
  Age: 78 Year
  Sex: Female
  Weight: 68 kg

DRUGS (11)
  1. VECTIBIX [Suspect]
     Indication: COLON CANCER
     Dosage: 400 MG, Q2WK
     Route: 041
     Dates: start: 20121226, end: 20130124
  2. DECADRON                           /00016001/ [Concomitant]
     Indication: PROPHYLAXIS
     Dosage: 8 MG, Q2WK
     Route: 041
     Dates: start: 20121226, end: 20130124
  3. URSO                               /00465701/ [Concomitant]
     Indication: HEPATIC CIRRHOSIS
     Dosage: 100 MG, TID
     Route: 048
  4. LASIX                              /00032601/ [Concomitant]
     Indication: PROPHYLAXIS
     Dosage: 20 MG, QD
     Route: 048
  5. NEXIUM                             /01479302/ [Concomitant]
     Indication: PROPHYLAXIS
     Dosage: 20 MG, QD
     Route: 048
  6. LIVACT                             /00847901/ [Concomitant]
     Indication: HEPATIC CIRRHOSIS
     Dosage: 4.15 G, TID
     Route: 048
  7. TRAMCET [Concomitant]
     Indication: BACK PAIN
     Dosage: UNK UNK, QID
     Route: 048
  8. MINOMYCIN [Concomitant]
     Indication: PROPHYLAXIS
     Dosage: 100 MG, BID
     Route: 048
  9. HIRUDOID                           /00723701/ [Concomitant]
     Indication: PROPHYLAXIS
     Dosage: UNK UNK, BID
     Route: 062
  10. LOCOID [Concomitant]
     Indication: PROPHYLAXIS
     Dosage: UNK UNK, BID
     Route: 062
  11. MYSER                              /01249201/ [Concomitant]
     Indication: PROPHYLAXIS
     Dosage: UNK UNK, QD
     Route: 062

REACTIONS (1)
  - Interstitial lung disease [Fatal]
